FAERS Safety Report 9830014 (Version 1)
Quarter: 2014Q1

REPORT INFORMATION
  Report Type: Spontaneous
  Country: US (occurrence: US)
  Receive Date: 20140120
  Receipt Date: 20140120
  Transmission Date: 20141002
  Serious: No
  Sender: FDA-Public Use
  Company Number: US-009507513-1401USA006123

PATIENT
  Sex: Male

DRUGS (2)
  1. COZAAR [Suspect]
     Indication: BLOOD PRESSURE
     Dosage: 50 MG
     Route: 048
     Dates: start: 201310
  2. COZAAR [Suspect]
     Dosage: 100 MG
     Route: 048
     Dates: start: 201312

REACTIONS (5)
  - Agitation [Not Recovered/Not Resolved]
  - Drug ineffective [Unknown]
  - Nervousness [Unknown]
  - Feeling jittery [Unknown]
  - Paranoia [Unknown]
